FAERS Safety Report 25122628 (Version 5)
Quarter: 2025Q3

REPORT INFORMATION
  Report Type: Report from Study
  Country: US (occurrence: US)
  Receive Date: 20250326
  Receipt Date: 20250809
  Transmission Date: 20251021
  Serious: Yes (Other)
  Sender: ALEXION PHARMACEUTICALS
  Company Number: US-AstraZeneca-CH-00831191A

PATIENT
  Sex: Male

DRUGS (1)
  1. ULTOMIRIS [Suspect]
     Active Substance: RAVULIZUMAB-CWVZ
     Indication: Myasthenia gravis
     Route: 065

REACTIONS (8)
  - Pleural effusion [Unknown]
  - Pneumonia [Unknown]
  - Urinary retention [Unknown]
  - Haemorrhage urinary tract [Unknown]
  - Urinary tract infection [Recovering/Resolving]
  - Chest pain [Unknown]
  - Cough [Not Recovered/Not Resolved]
  - Dyspnoea [Unknown]
